FAERS Safety Report 21256041 (Version 8)
Quarter: 2024Q4

REPORT INFORMATION
  Report Type: Spontaneous
  Country: JP (occurrence: JP)
  Receive Date: 20220825
  Receipt Date: 20241031
  Transmission Date: 20250115
  Serious: Yes (Other)
  Sender: BRISTOL-MYERS SQUIBB COMPANY
  Company Number: JP-BRISTOL-MYERS SQUIBB COMPANY-2022-092000

PATIENT
  Age: 51 Year
  Sex: Female

DRUGS (15)
  1. YERVOY [Suspect]
     Active Substance: IPILIMUMAB
     Indication: Pleural mesothelioma malignant
     Route: 041
     Dates: start: 20220613, end: 20220613
  2. YERVOY [Suspect]
     Active Substance: IPILIMUMAB
     Route: 041
     Dates: start: 20220801, end: 20220801
  3. YERVOY [Suspect]
     Active Substance: IPILIMUMAB
     Route: 041
     Dates: start: 20220926
  4. OPDIVO [Suspect]
     Active Substance: NIVOLUMAB
     Indication: Pleural mesothelioma malignant
     Route: 041
     Dates: start: 20220613, end: 20220613
  5. OPDIVO [Suspect]
     Active Substance: NIVOLUMAB
     Route: 041
     Dates: start: 20220704, end: 20220704
  6. OPDIVO [Suspect]
     Active Substance: NIVOLUMAB
     Route: 041
     Dates: start: 20220801, end: 20220801
  7. OPDIVO [Suspect]
     Active Substance: NIVOLUMAB
     Route: 041
     Dates: start: 20220926
  8. ACETAMINOPHEN [Suspect]
     Active Substance: ACETAMINOPHEN
     Indication: Pyrexia
     Dates: start: 20220617, end: 20220619
  9. ELIQUIS [Concomitant]
     Active Substance: APIXABAN
     Indication: Cerebrovascular accident prophylaxis
     Route: 048
  10. BIO-THREE [Concomitant]
     Active Substance: HERBALS
     Indication: Product used for unknown indication
     Route: 048
  11. FAMOTIDINE [Concomitant]
     Active Substance: FAMOTIDINE
     Indication: Product used for unknown indication
     Route: 048
  12. METHYLCOBALAMIN [Concomitant]
     Active Substance: METHYLCOBALAMIN
     Indication: Product used for unknown indication
     Route: 048
  13. ADETPHOS [Concomitant]
     Active Substance: ADENOSINE TRIPHOSPHATE
     Indication: Product used for unknown indication
     Route: 048
  14. SODIUM HYALURONATE [Concomitant]
     Active Substance: HYALURONATE SODIUM
     Indication: Product used for unknown indication
     Route: 047
  15. METOCLOPRAMIDE HYDROCHLORIDE [Concomitant]
     Active Substance: METOCLOPRAMIDE HYDROCHLORIDE
     Indication: Dizziness
     Route: 048

REACTIONS (7)
  - Immune-mediated optic neuritis [Recovering/Resolving]
  - Pyrexia [Recovered/Resolved]
  - Psoriasis [Recovered/Resolved]
  - Facial paralysis [Recovered/Resolved]
  - Generalised oedema [Recovered/Resolved]
  - Hepatic enzyme increased [Recovered/Resolved]
  - Inflammation [Recovering/Resolving]

NARRATIVE: CASE EVENT DATE: 20220613
